FAERS Safety Report 12341444 (Version 1)
Quarter: 2016Q2

REPORT INFORMATION
  Report Type: Spontaneous
  Country: US (occurrence: None)
  Receive Date: 20160505
  Receipt Date: 20160505
  Transmission Date: 20160815
  Serious: Yes (Hospitalization)
  Sender: FDA-Public Use
  Company Number: None

PATIENT
  Age: 14 Year
  Sex: Male

DRUGS (6)
  1. OMEPRAZOLE. [Concomitant]
     Active Substance: OMEPRAZOLE
  2. ALBUTEROL. [Concomitant]
     Active Substance: ALBUTEROL
  3. NASONEX [Concomitant]
     Active Substance: MOMETASONE FUROATE
  4. PULMOZYME [Suspect]
     Active Substance: DORNASE ALFA
     Indication: CYSTIC FIBROSIS
     Dosage: 2.5MG/2.5ML QD NHALATION
     Route: 055
     Dates: start: 20140110
  5. XANAX [Concomitant]
     Active Substance: ALPRAZOLAM
  6. SODIUM CHLORIDE. [Concomitant]
     Active Substance: SODIUM CHLORIDE

REACTIONS (1)
  - Malaise [None]

NARRATIVE: CASE EVENT DATE: 2016
